FAERS Safety Report 21053723 (Version 1)
Quarter: 2022Q3

REPORT INFORMATION
  Report Type: Spontaneous
  Country: JO (occurrence: JO)
  Receive Date: 20220707
  Receipt Date: 20220707
  Transmission Date: 20221027
  Serious: Yes (Other)
  Sender: FDA-Public Use
  Company Number: JO-AMGEN-JORSP2022113830

PATIENT

DRUGS (6)
  1. ADALIMUMAB [Suspect]
     Active Substance: ADALIMUMAB
     Indication: Iridocyclitis
     Dosage: UNK
     Route: 065
  2. ADALIMUMAB [Suspect]
     Active Substance: ADALIMUMAB
     Indication: Uveitis
  3. METHOTREXATE [Concomitant]
     Active Substance: METHOTREXATE
  4. CYCLOSPORINE [Concomitant]
     Active Substance: CYCLOSPORINE
  5. AZATHIOPRINE [Concomitant]
     Active Substance: AZATHIOPRINE
  6. INFLIXIMAB [Concomitant]
     Active Substance: INFLIXIMAB

REACTIONS (6)
  - Iris adhesions [Unknown]
  - Intraocular pressure increased [Unknown]
  - Retinal detachment [Unknown]
  - Blindness [Unknown]
  - Cataract [Unknown]
  - Keratopathy [Unknown]
